FAERS Safety Report 8336006-X (Version None)
Quarter: 2012Q2

REPORT INFORMATION
  Report Type: 
  Country: None (occurrence: None)
  Receive Date: 20120501
  Receipt Date: 20120501
  Transmission Date: 20120825
  Serious: Yes (Hospitalization)
  Sender: FDA-Public Use
  Company Number: None

PATIENT
  Age: 57 Year
  Sex: Male
  Weight: 85.9 kg

DRUGS (2)
  1. FLUOROURACIL [Suspect]
     Indication: TONSIL CANCER
     Dates: start: 20120206, end: 20120209
  2. CISPLATIN [Suspect]
     Indication: TONSIL CANCER
     Dates: start: 20120206, end: 20120209

REACTIONS (9)
  - HYPOKALAEMIA [None]
  - PYREXIA [None]
  - CHILLS [None]
  - ABDOMINAL PAIN [None]
  - DIARRHOEA [None]
  - MUCOUS STOOLS [None]
  - DECREASED APPETITE [None]
  - NAUSEA [None]
  - VOMITING [None]
